FAERS Safety Report 4444087-9 (Version None)
Quarter: 2004Q3

REPORT INFORMATION
  Report Type: 
  Country: None (occurrence: None)
  Receive Date: 20040729
  Receipt Date: 20040107
  Transmission Date: 20050211
  Serious: Yes (Hospitalization, Other)
  Sender: FDA-Public Use
  Company Number: US-JNJFOC-20030806142

PATIENT
  Age: 51 Year
  Sex: Female

DRUGS (12)
  1. RISPERDAL [Suspect]
     Indication: SCHIZOPHRENIA
     Dosage: 0.5 MG, 1 IN 1 DAY; ORAL (SEE IMAGE)
     Route: 048
     Dates: start: 19990317
  2. RISPERDAL [Suspect]
     Indication: SCHIZOPHRENIA
     Dosage: 0.5 MG, 1 IN 1 DAY; ORAL (SEE IMAGE)
     Route: 048
     Dates: start: 20020401
  3. RISPERDAL [Suspect]
     Indication: SCHIZOPHRENIA
     Dosage: 0.5 MG, 1 IN 1 DAY; ORAL (SEE IMAGE)
     Route: 048
     Dates: start: 20020701
  4. SERZONE [Concomitant]
  5. PREMARIN [Concomitant]
  6. LANSOPRAZOLE [Concomitant]
  7. ZYPREXA [Concomitant]
  8. ATIVAN [Concomitant]
  9. ZOLOFT [Concomitant]
  10. TAGAMET [Concomitant]
  11. METOPROLOL [Concomitant]
  12. PRILOSEC [Concomitant]

REACTIONS (8)
  - DIARRHOEA [None]
  - DYSPHAGIA [None]
  - HALLUCINATION, AUDITORY [None]
  - MUSCULOSKELETAL STIFFNESS [None]
  - PARANOIA [None]
  - SUICIDE ATTEMPT [None]
  - TARDIVE DYSKINESIA [None]
  - TONGUE PARALYSIS [None]
